FAERS Safety Report 6326337-7 (Version None)
Quarter: 2009Q3

REPORT INFORMATION
  Report Type: 
  Country: None (occurrence: None)
  Receive Date: 20090819
  Receipt Date: 20090805
  Transmission Date: 20100115
  Serious: Yes (Death, Hospitalization)
  Sender: FDA-Public Use
  Company Number: B0588803A

PATIENT
  Sex: 0

DRUGS (2)
  1. DIGOXIN [Suspect]
     Indication: THERAPEUTIC PROCEDURE
     Dosage: 1.5 MG/ SINGLE DOSE/ INTRAAMNIOTIC
     Route: 012
  2. MISOPROSTOL [Suspect]
     Dosage: 400 MG/ SINGLE DOSE/ TRANSPLACENTA
     Route: 064

REACTIONS (2)
  - ABORTION INDUCED [None]
  - MATERNAL DRUGS AFFECTING FOETUS [None]
